FAERS Safety Report 11977831 (Version 2)
Quarter: 2016Q2

REPORT INFORMATION
  Report Type: Spontaneous
  Country: DE (occurrence: DE)
  Receive Date: 20160129
  Receipt Date: 20160607
  Transmission Date: 20160815
  Serious: Yes (Death, Hospitalization)
  Sender: FDA-Public Use
  Company Number: DE-JNJFOC-20160119343

PATIENT
  Sex: Male
  Weight: 60 kg

DRUGS (2)
  1. IBRUTINIB [Suspect]
     Active Substance: IBRUTINIB
     Indication: B-CELL LYMPHOMA
     Route: 048
     Dates: start: 201501
  2. IBRUTINIB [Suspect]
     Active Substance: IBRUTINIB
     Indication: B-CELL LYMPHOMA
     Route: 048
     Dates: start: 20150925

REACTIONS (6)
  - Acute kidney injury [Fatal]
  - Haemothorax [Fatal]
  - Sepsis [Fatal]
  - Pneumothorax [Fatal]
  - Secondary immunodeficiency [Fatal]
  - Coagulopathy [Fatal]

NARRATIVE: CASE EVENT DATE: 2015
